FAERS Safety Report 4584194-3 (Version None)
Quarter: 2005Q1

REPORT INFORMATION
  Report Type: 
  Country: None (occurrence: None)
  Receive Date: 20050216
  Receipt Date: 20050204
  Transmission Date: 20050727
  Serious: Yes (Other)
  Sender: FDA-Public Use
  Company Number: CA-GLAXOSMITHKLINE-A0544907A

PATIENT
  Age: 67 Year
  Sex: Female

DRUGS (4)
  1. MELPHALAN [Suspect]
     Indication: MULTIPLE MYELOMA
     Dates: start: 20020401, end: 20030801
  2. PREDNISONE [Suspect]
     Indication: MULTIPLE MYELOMA
     Dates: start: 20020401, end: 20030801
  3. COUMADIN [Suspect]
  4. FRAGMIN [Concomitant]
     Indication: THROMBOSIS PROPHYLAXIS
     Dates: start: 20030101

REACTIONS (2)
  - DEEP VEIN THROMBOSIS [None]
  - EMBOLISM [None]
